FAERS Safety Report 16532091 (Version 1)
Quarter: 2019Q3

REPORT INFORMATION
  Report Type: Spontaneous
  Country: BR (occurrence: BR)
  Receive Date: 20190704
  Receipt Date: 20190704
  Transmission Date: 20191004
  Serious: No
  Sender: FDA-Public Use
  Company Number: BR-BEH-2019103764

PATIENT
  Sex: Female

DRUGS (1)
  1. HAEMOCOMPLETTAN P [Suspect]
     Active Substance: FIBRINOGEN HUMAN
     Route: 065

REACTIONS (2)
  - Rash [Unknown]
  - Extravasation [Unknown]
